FAERS Safety Report 5399136-0 (Version None)
Quarter: 2007Q3

REPORT INFORMATION
  Report Type: 
  Country: None (occurrence: None)
  Receive Date: 20070727
  Receipt Date: 20060522
  Transmission Date: 20080115
  Serious: No
  Sender: FDA-Public Use
  Company Number: A0606309A

PATIENT
  Age: 64 Year
  Sex: Female

DRUGS (2)
  1. TAGAMET HB 200 [Suspect]
  2. PRILOSEC [Concomitant]

REACTIONS (1)
  - BLOOD GLUCOSE INCREASED [None]
